FAERS Safety Report 9960845 (Version 1)
Quarter: 2014Q1

REPORT INFORMATION
  Report Type: Spontaneous
  Country: US (occurrence: None)
  Receive Date: 20140304
  Receipt Date: 20140304
  Transmission Date: 20141002
  Serious: Yes (Other)
  Sender: FDA-Public Use
  Company Number: None

PATIENT
  Age: 48 Year
  Sex: Female
  Weight: 152.7 kg

DRUGS (1)
  1. CYMBALTA [Suspect]
     Indication: BIPOLAR I DISORDER
     Dosage: 30 MG ( 3 TABS) A FEW WEEKS AM PO
     Route: 048

REACTIONS (6)
  - Dyspnoea [None]
  - Tremor [None]
  - Sleep disorder [None]
  - Mood swings [None]
  - Bipolar disorder [None]
  - Condition aggravated [None]
